FAERS Safety Report 7287326-1 (Version None)
Quarter: 2011Q1

REPORT INFORMATION
  Report Type: 
  Country: None (occurrence: None)
  Receive Date: 20110207
  Receipt Date: 20110207
  Transmission Date: 20110831
  Serious: Yes (Disabling)
  Sender: FDA-Public Use
  Company Number: None

PATIENT
  Age: 76 Year
  Sex: Female
  Weight: 74.8435 kg

DRUGS (1)
  1. RECLAST [Suspect]
     Dosage: ONCE A YR

REACTIONS (3)
  - PAIN IN JAW [None]
  - MASTICATION DISORDER [None]
  - PAIN IN EXTREMITY [None]
